FAERS Safety Report 4894906-7 (Version None)
Quarter: 2006Q1

REPORT INFORMATION
  Report Type: 
  Country: None (occurrence: None)
  Receive Date: 20060130
  Receipt Date: 20050215
  Transmission Date: 20060701
  Serious: No
  Sender: FDA-Public Use
  Company Number: US-BRISTOL-MYERS SQUIBB COMPANY-12863163

PATIENT
  Age: 62 Year
  Sex: Male
  Weight: 109 kg

DRUGS (5)
  1. GLUCOPHAGE [Suspect]
     Indication: DIABETES MELLITUS
     Dosage: GLUCOPHAGE 500 MG, 2/DAY, INITIATED IN SEP-04. GLUCOPHAGE 1000 MG, 2/DAY,  INITIATED IN DEC-2004
     Dates: start: 20040901
  2. PRINIVIL [Concomitant]
     Dosage: DURATION OF THERAPY - FEW YEARS
  3. PLENDIL [Concomitant]
     Dosage: DURATION OF THERAPY - FEW YEARS
  4. TOPROL [Concomitant]
     Dosage: DURATION OF THERAPY - FEW YEARS
  5. DEPAKOTE [Concomitant]
     Dosage: DURATION OF THERAPY - FEW YEARS

REACTIONS (2)
  - DIARRHOEA [None]
  - FLATULENCE [None]
